FAERS Safety Report 18552926 (Version 2)
Quarter: 2020Q4

REPORT INFORMATION
  Report Type: Spontaneous
  Country: BR (occurrence: BR)
  Receive Date: 20201127
  Receipt Date: 20201204
  Transmission Date: 20210114
  Serious: Yes (Hospitalization)
  Sender: FDA-Public Use
  Company Number: BR-EMD SERONO-9200936

PATIENT
  Age: 53 Year
  Sex: Female

DRUGS (3)
  1. GLIFAGE XR [Suspect]
     Active Substance: METFORMIN HYDROCHLORIDE
     Indication: PRODUCT USED FOR UNKNOWN INDICATION
     Route: 048
     Dates: start: 2015, end: 202011
  2. GLIFAGE XR [Suspect]
     Active Substance: METFORMIN HYDROCHLORIDE
     Dosage: GLIFAGE XR 850MG AND GLIFAGE XR 750MG, PATIENT USED 1 PACKAGE OF EACH ?THERAPY START DATE: NOV 2020
     Route: 048
     Dates: end: 20201118
  3. GLIMEPIRIDE. [Concomitant]
     Active Substance: GLIMEPIRIDE
     Indication: PRODUCT USED FOR UNKNOWN INDICATION

REACTIONS (6)
  - Product dispensing error [Recovered/Resolved]
  - Diarrhoea [Recovering/Resolving]
  - Off label use [Recovered/Resolved]
  - Somnolence [Recovering/Resolving]
  - Cold sweat [Recovering/Resolving]
  - Neoplasm malignant [Not Recovered/Not Resolved]

NARRATIVE: CASE EVENT DATE: 2015
